FAERS Safety Report 22232178 (Version 2)
Quarter: 2023Q2

REPORT INFORMATION
  Report Type: Report from Study
  Country: CA (occurrence: CA)
  Receive Date: 20230420
  Receipt Date: 20230425
  Transmission Date: 20230721
  Serious: Yes (Other)
  Sender: FDA-Public Use
  Company Number: CA-JNJFOC-20230440837

PATIENT
  Age: 16 Year
  Sex: Male
  Weight: 60 kg

DRUGS (1)
  1. REMICADE [Suspect]
     Active Substance: INFLIXIMAB
     Indication: Crohn^s disease
     Dosage: ON 18-APR-2023, PATIENT RECEIVED 16TH INFLIXIMAB RECOMBINANT INFUSION OF 600 MG AND PARTIAL HARVEY-B
     Route: 041
     Dates: start: 20220310

REACTIONS (4)
  - Intestinal stenosis [Unknown]
  - Abdominal pain [Unknown]
  - Diarrhoea [Unknown]
  - Off label use [Unknown]

NARRATIVE: CASE EVENT DATE: 20220310
